FAERS Safety Report 19467654 (Version 1)
Quarter: 2021Q2

REPORT INFORMATION
  Report Type: Spontaneous
  Country: US (occurrence: US)
  Receive Date: 20210625
  Receipt Date: 20210625
  Transmission Date: 20210717
  Serious: Yes (Hospitalization)
  Sender: FDA-Public Use
  Company Number: None

PATIENT
  Age: 50 Year
  Sex: Female

DRUGS (19)
  1. VITAMIN D [Concomitant]
     Active Substance: VITAMIN D NOS
  2. GABAPENTIN. [Concomitant]
     Active Substance: GABAPENTIN
  3. DILTIAZEM. [Concomitant]
     Active Substance: DILTIAZEM
  4. ESOMEPRA MAG [Concomitant]
  5. MONTELUKAST [Concomitant]
     Active Substance: MONTELUKAST SODIUM
  6. ONDANSETRON [Concomitant]
     Active Substance: ONDANSETRON
  7. FLUTICASONE. [Concomitant]
     Active Substance: FLUTICASONE
  8. CETRIZINE [Concomitant]
     Active Substance: CETIRIZINE HYDROCHLORIDE
  9. SILDENAFIL. [Suspect]
     Active Substance: SILDENAFIL
     Indication: PULMONARY HYPERTENSION
     Route: 048
     Dates: start: 20180628
  10. METOPROL SUC [Concomitant]
  11. WARFARIN [Concomitant]
     Active Substance: WARFARIN
  12. TORSEMIDE. [Concomitant]
     Active Substance: TORSEMIDE
  13. ALLOPURINOL. [Concomitant]
     Active Substance: ALLOPURINOL
  14. SPRINOLOACT [Concomitant]
  15. JARDIANCE [Concomitant]
     Active Substance: EMPAGLIFLOZIN
  16. ZINC. [Concomitant]
     Active Substance: ZINC
  17. TYLENOL [Concomitant]
     Active Substance: ACETAMINOPHEN
  18. VITAMIN C [Concomitant]
     Active Substance: ASCORBIC ACID
  19. MIDODRINE [Concomitant]
     Active Substance: MIDODRINE

REACTIONS (1)
  - Cardiac valve disease [None]

NARRATIVE: CASE EVENT DATE: 20210602
